FAERS Safety Report 9632616 (Version 1)
Quarter: 2013Q4

REPORT INFORMATION
  Report Type: Spontaneous
  Country: US (occurrence: US)
  Receive Date: 20131018
  Receipt Date: 20131018
  Transmission Date: 20140711
  Serious: No
  Sender: FDA-Public Use
  Company Number: US-009507513-1310USA004328

PATIENT
  Age: 33 Year
  Sex: Female
  Weight: 48.73 kg

DRUGS (2)
  1. NUVARING [Suspect]
     Indication: HORMONE LEVEL ABNORMAL
     Dosage: 4 WEEKS FOLLOWED IMMEDIATELY BY A NEW RING FOR 4 WEEKS WITHOUT A BREAK
     Route: 067
     Dates: start: 20130726, end: 20131008
  2. PROZAC [Concomitant]
     Dosage: 20 MG, UNK

REACTIONS (6)
  - Menorrhagia [Not Recovered/Not Resolved]
  - Abdominal pain lower [Not Recovered/Not Resolved]
  - Metrorrhagia [Not Recovered/Not Resolved]
  - Drug administration error [Unknown]
  - Menstruation delayed [Recovered/Resolved]
  - Off label use [Unknown]
